FAERS Safety Report 8122076-0 (Version None)
Quarter: 2012Q1

REPORT INFORMATION
  Report Type: 
  Country: None (occurrence: None)
  Receive Date: 20120207
  Receipt Date: 20120207
  Transmission Date: 20120608
  Serious: No
  Sender: FDA-Public Use
  Company Number: None

PATIENT
  Age: 64 Year
  Sex: Female
  Weight: 56.6996 kg

DRUGS (1)
  1. ALENDRONATE SODIUM [Suspect]
     Indication: OSTEOPOROSIS
     Dosage: 10 MG ONCE (1) DAILY ORAL 047
     Route: 048
     Dates: start: 20101001, end: 20110731

REACTIONS (2)
  - PRODUCT SUBSTITUTION ISSUE [None]
  - GASTROINTESTINAL DISORDER [None]
